FAERS Safety Report 5782674-6 (Version None)
Quarter: 2008Q2

REPORT INFORMATION
  Report Type: 
  Country: None (occurrence: None)
  Receive Date: 20080624
  Receipt Date: 20080616
  Transmission Date: 20081010
  Serious: Yes (Hospitalization, Other)
  Sender: FDA-Public Use
  Company Number: PHHY2008DE11323

PATIENT
  Sex: Male

DRUGS (4)
  1. CLOZAPINE [Suspect]
     Indication: SCHIZOPHRENIA
     Dosage: 200MG/DAY
     Dates: start: 20070718, end: 20070911
  2. ZYPREXA [Suspect]
     Indication: SCHIZOPHRENIA
     Dosage: 5MG/DAY
     Route: 048
     Dates: start: 20070525, end: 20070822
  3. LORAZEPAM [Concomitant]
     Dosage: 1.5MG/DAY
     Route: 048
     Dates: start: 20070427, end: 20070923
  4. AKINETON [Concomitant]
     Dosage: 4MG/DAY
     Route: 048
     Dates: start: 20070518

REACTIONS (7)
  - APHASIA [None]
  - CEREBRAL HAEMORRHAGE [None]
  - COMPUTERISED TOMOGRAM ABNORMAL [None]
  - DYSARTHRIA [None]
  - HYPERTENSION [None]
  - MUSCULAR WEAKNESS [None]
  - PSYCHOMOTOR RETARDATION [None]
